FAERS Safety Report 11695747 (Version 1)
Quarter: 2015Q4

REPORT INFORMATION
  Report Type: Spontaneous
  Country: CA (occurrence: None)
  Receive Date: 20151103
  Receipt Date: 20151103
  Transmission Date: 20160304
  Serious: No
  Sender: FDA-Public Use
  Company Number: None

PATIENT
  Age: 1 Day
  Sex: Female
  Weight: 100.7 kg

DRUGS (3)
  1. MIRENA [Suspect]
     Active Substance: LEVONORGESTREL
     Dates: start: 20150820, end: 20150930
  2. BIRTH CONTROL PILLS [Concomitant]
     Active Substance: UNSPECIFIED INGREDIENT
  3. MELATONIN [Concomitant]
     Active Substance: MELATONIN

REACTIONS (9)
  - Toothache [None]
  - Vaginal haemorrhage [None]
  - Muscle spasms [None]
  - Arthralgia [None]
  - Feeding disorder [None]
  - Back pain [None]
  - Suicidal ideation [None]
  - Complication of device removal [None]
  - Headache [None]

NARRATIVE: CASE EVENT DATE: 20150820
